FAERS Safety Report 8127909-X (Version None)
Quarter: 2011Q4

REPORT INFORMATION
  Report Type: 
  Country: None (occurrence: None)
  Receive Date: 20111230
  Receipt Date: 20110408
  Transmission Date: 20120403
  Serious: Yes (Other)
  Sender: FDA-Public Use
  Company Number: 275332USA

PATIENT
  Age: 15 Year

DRUGS (1)
  1. AZITHROMYCIN [Suspect]
     Dosage: 500 MG

REACTIONS (1)
  - CONVULSION [None]
